FAERS Safety Report 12919756 (Version 6)
Quarter: 2017Q1

REPORT INFORMATION
  Report Type: Spontaneous
  Country: US (occurrence: US)
  Receive Date: 20161108
  Receipt Date: 20170131
  Transmission Date: 20170428
  Serious: No
  Sender: FDA-Public Use
  Company Number: US-PFIZER INC-2016485224

PATIENT
  Age: 57 Year
  Sex: Male

DRUGS (4)
  1. SUTENT [Suspect]
     Active Substance: SUNITINIB MALATE
     Indication: RENAL CANCER METASTATIC
     Dosage: 37.5 MG DAILY, CYCLIC (28 DAYS ON/14 DAYS OFF)
     Route: 048
     Dates: start: 20161016, end: 20161107
  2. SUTENT [Suspect]
     Active Substance: SUNITINIB MALATE
     Dosage: 37.5 MG, CYCLIC (DAILY, 1 WEEK ON/ 2 WEEK OFF)
     Route: 048
     Dates: start: 20161016, end: 201612
  3. SUTENT [Suspect]
     Active Substance: SUNITINIB MALATE
     Dosage: 37.5 MG, DAILY
     Route: 048
     Dates: start: 20161014
  4. SUTENT [Suspect]
     Active Substance: SUNITINIB MALATE
     Dosage: 37.5 MG, CYCLIC (2WEEKS ON /1 WEEK OFF)
     Dates: start: 20161128, end: 20161211

REACTIONS (13)
  - Neoplasm progression [Unknown]
  - Toothache [Unknown]
  - Liver function test increased [Recovered/Resolved]
  - Dysgeusia [Unknown]
  - Asthenia [Unknown]
  - Fatigue [Unknown]
  - Blood creatinine increased [Unknown]
  - Myalgia [Unknown]
  - Drug dose omission [Unknown]
  - Diarrhoea [Unknown]
  - Influenza like illness [Unknown]
  - Pain in jaw [Unknown]
  - Hepatic enzyme increased [Recovered/Resolved]

NARRATIVE: CASE EVENT DATE: 20161107
